FAERS Safety Report 20187580 (Version 6)
Quarter: 2022Q2

REPORT INFORMATION
  Report Type: Report from Study
  Country: US (occurrence: US)
  Receive Date: 20211215
  Receipt Date: 20220401
  Transmission Date: 20220721
  Serious: Yes (Other)
  Sender: FDA-Public Use
  Company Number: US-NOVARTISTESTPH-NVSC2021US287378

PATIENT
  Sex: Female

DRUGS (1)
  1. ENTRESTO [Suspect]
     Active Substance: SACUBITRIL\VALSARTAN
     Indication: Product used for unknown indication
     Dosage: 1 DOSAGE FORM, BID
     Route: 048
     Dates: start: 20211130

REACTIONS (9)
  - Cardiac failure [Unknown]
  - Dyspnoea [Unknown]
  - Dehydration [Unknown]
  - Arthralgia [Unknown]
  - Gait disturbance [Unknown]
  - COVID-19 [Unknown]
  - Cough [Unknown]
  - Stridor [Unknown]
  - Throat clearing [Unknown]
